FAERS Safety Report 26192923 (Version 1)
Quarter: 2025Q4

REPORT INFORMATION
  Report Type: Spontaneous
  Country: CN (occurrence: CN)
  Receive Date: 20251223
  Receipt Date: 20251223
  Transmission Date: 20260118
  Serious: Yes (Hospitalization)
  Sender: SANDOZ
  Company Number: CN-002147023-NVSC2025CN194597

PATIENT
  Age: 60 Year
  Sex: Male
  Weight: 80.7 kg

DRUGS (12)
  1. ROSUVASTATIN CALCIUM [Suspect]
     Active Substance: ROSUVASTATIN CALCIUM
     Indication: Arteriosclerosis coronary artery
     Dosage: 10 MG, QN (TABLETS)
     Dates: start: 20250602, end: 20250727
  2. ROSUVASTATIN CALCIUM [Suspect]
     Active Substance: ROSUVASTATIN CALCIUM
     Dosage: 10 MG, QN (TABLETS)
     Dates: start: 20250728
  3. METFORMIN HYDROCHLORIDE [Concomitant]
     Active Substance: METFORMIN HYDROCHLORIDE
     Indication: Type 2 diabetes mellitus
     Dosage: 0.5 G, TID (SUSTAINED-RELEASE TABLETS)
     Dates: start: 20250728
  4. METOPROLOL SUCCINATE [Concomitant]
     Active Substance: METOPROLOL SUCCINATE
     Indication: Arteriosclerosis coronary artery
     Dosage: 47.5 MG, QD (SUSTAINED-RELEASE TABLETS)
     Dates: start: 2017
  5. CLOPIDOGREL BISULFATE [Concomitant]
     Active Substance: CLOPIDOGREL BISULFATE
     Indication: Arteriosclerosis coronary artery
     Dosage: 23.75 MG, QD (TABLETS)
     Dates: start: 2017
  6. CLOPIDOGREL BISULFATE [Concomitant]
     Active Substance: CLOPIDOGREL BISULFATE
     Indication: Hypertension
     Dosage: 23.75 MG, QD (TABLETS)
     Dates: start: 2017
  7. INSULIN GLARGINE [Concomitant]
     Active Substance: INSULIN GLARGINE
     Indication: Type 2 diabetes mellitus
     Dosage: 18 U, QN (INJECTION)
     Dates: start: 20250728
  8. INSULIN ASPART [Concomitant]
     Active Substance: INSULIN ASPART
     Indication: Type 2 diabetes mellitus
     Dosage: 10 IU, TID (INJECTION)
  9. ISOSORBIDE MONONITRATE [Concomitant]
     Active Substance: ISOSORBIDE MONONITRATE
     Indication: Cardiac failure
     Dosage: 1 TABLET, QD
     Dates: start: 2017
  10. ISOSORBIDE MONONITRATE [Concomitant]
     Active Substance: ISOSORBIDE MONONITRATE
     Indication: Arteriosclerosis coronary artery
  11. DIGOXIN [Concomitant]
     Active Substance: DIGOXIN
     Indication: Arteriosclerosis coronary artery
     Dosage: 0.125 MG, TID
     Dates: start: 20250728
  12. DIGOXIN [Concomitant]
     Active Substance: DIGOXIN
     Indication: Cardiac failure

REACTIONS (2)
  - Hydronephrosis [Not Recovered/Not Resolved]
  - Ureterolithiasis [Not Recovered/Not Resolved]

NARRATIVE: CASE EVENT DATE: 20251216
